FAERS Safety Report 7846660 (Version 2)
Quarter: 2012Q4

REPORT INFORMATION
  Report Type: Report from Study
  Country: JP (occurrence: JP)
  Receive Date: 20110308
  Receipt Date: 20121227
  Transmission Date: 20130627
  Serious: Yes (Hospitalization)
  Sender: FDA-Public Use
  Company Number: PHHY2011JP16066

PATIENT
  Age: 68 Year
  Sex: Male

DRUGS (4)
  1. AFINITOR [Suspect]
     Indication: METASTATIC RENAL CELL CARCINOMA
     Dosage: 10 mg, daily
     Route: 048
     Dates: start: 20110127, end: 20110217
  2. ZOMETA [Concomitant]
     Dosage: UNK
     Dates: start: 20090824, end: 20110217
  3. INTERFERON ALFA [Concomitant]
     Indication: METASTATIC RENAL CELL CARCINOMA
     Dosage: 10 mg,daily
     Dates: start: 20110127, end: 20110420
  4. DIOVAN [Concomitant]
     Dosage: 80 mg, daily
     Route: 048
     Dates: start: 200908, end: 20120217

REACTIONS (3)
  - Cerebral haemorrhage [Unknown]
  - Malignant neoplasm progression [Recovered/Resolved]
  - Metastatic renal cell carcinoma [Recovered/Resolved]
